FAERS Safety Report 4456982-5 (Version None)
Quarter: 2004Q3

REPORT INFORMATION
  Report Type: 
  Country: None (occurrence: None)
  Receive Date: 20040923
  Receipt Date: 20040908
  Transmission Date: 20050211
  Serious: Yes (Other)
  Sender: FDA-Public Use
  Company Number: CA-JNJFOC-20040902893

PATIENT
  Sex: Female

DRUGS (3)
  1. ORTHO EVRA [Suspect]
     Route: 062
     Dates: start: 20040805
  2. PERCOCET [Concomitant]
  3. PERCOCET [Concomitant]
     Indication: PAIN

REACTIONS (8)
  - APPLICATION SITE DERMATITIS [None]
  - APPLICATION SITE ERYTHEMA [None]
  - APPLICATION SITE VESICLES [None]
  - CHEST PAIN [None]
  - DRUG INTOLERANCE [None]
  - HYPOAESTHESIA [None]
  - NAUSEA [None]
  - VOMITING [None]
